FAERS Safety Report 18967744 (Version 2)
Quarter: 2021Q1

REPORT INFORMATION
  Report Type: Spontaneous
  Country: US (occurrence: US)
  Receive Date: 20210304
  Receipt Date: 20210308
  Transmission Date: 20210420
  Serious: No
  Sender: FDA-Public Use
  Company Number: US-BAYER-2021-093875

PATIENT
  Age: 77 Year
  Sex: Female
  Weight: 56.69 kg

DRUGS (4)
  1. CETIRIZINE [Concomitant]
     Active Substance: CETIRIZINE HYDROCHLORIDE
  2. MIRALAX [Suspect]
     Active Substance: POLYETHYLENE GLYCOL 3350
     Indication: COLONOSCOPY
     Dosage: 17 G
     Route: 048
     Dates: start: 20210302, end: 20210303
  3. MAGNESIUM CITRATE. [Concomitant]
     Active Substance: MAGNESIUM CITRATE
  4. DULCOLAX STOOL SOFTENER [Concomitant]
     Active Substance: DOCUSATE SODIUM

REACTIONS (11)
  - Off label use [Unknown]
  - Abdominal distension [Unknown]
  - Nausea [Unknown]
  - Back pain [Unknown]
  - Dehydration [Unknown]
  - Product use in unapproved indication [Unknown]
  - Headache [Unknown]
  - Poor peripheral circulation [Unknown]
  - Hypoaesthesia [Unknown]
  - Diarrhoea [Unknown]
  - Micturition frequency decreased [Unknown]
